FAERS Safety Report 7606921-0 (Version None)
Quarter: 2011Q3

REPORT INFORMATION
  Report Type: 
  Country: None (occurrence: None)
  Receive Date: 20110713
  Receipt Date: 20110708
  Transmission Date: 20111222
  Serious: Yes (Congenital Anomaly)
  Sender: FDA-Public Use
  Company Number: FR-ROCHE-789058

PATIENT
  Weight: 3.4 kg

DRUGS (8)
  1. MONAZOL [Suspect]
     Route: 065
  2. VOGALENE [Suspect]
     Indication: VOMITING
  3. TIMOFEROL [Suspect]
     Indication: ANAEMIA
     Route: 065
  4. PROGESTERONE [Suspect]
     Route: 065
  5. ALBUTEROL [Suspect]
     Indication: UTERINE SPASM
  6. ACETAMINOPHEN [Suspect]
     Indication: UTERINE SPASM
     Route: 065
  7. UVEDOSE [Suspect]
     Route: 065
  8. TAMIFLU [Suspect]
     Indication: INFLUENZA
     Dosage: 2 CAPSULE 75 MG 5DAYS
     Dates: start: 20091201

REACTIONS (2)
  - APGAR SCORE LOW [None]
  - UMBILICAL CORD AROUND NECK [None]
